FAERS Safety Report 20058985 (Version 1)
Quarter: 2021Q4

REPORT INFORMATION
  Report Type: Spontaneous
  Country: MY (occurrence: None)
  Receive Date: 20211111
  Receipt Date: 20211111
  Transmission Date: 20220303
  Serious: Yes (Other)
  Sender: FDA-Public Use
  Company Number: MY-FRESENIUS KABI-FK202112377

PATIENT
  Age: 52 Year
  Sex: Female

DRUGS (6)
  1. EPIRUBICIN [Suspect]
     Active Substance: EPIRUBICIN
     Indication: Invasive breast carcinoma
     Route: 065
  2. EPIRUBICIN [Suspect]
     Active Substance: EPIRUBICIN
     Indication: Metastases to lung
  3. CYCLOPHOSPHAMIDE [Suspect]
     Active Substance: CYCLOPHOSPHAMIDE
     Indication: Invasive breast carcinoma
     Route: 065
  4. CYCLOPHOSPHAMIDE [Suspect]
     Active Substance: CYCLOPHOSPHAMIDE
     Indication: Metastases to lung
  5. FLUOROURACIL [Suspect]
     Active Substance: FLUOROURACIL
     Indication: Invasive breast carcinoma
     Route: 065
  6. FLUOROURACIL [Suspect]
     Active Substance: FLUOROURACIL
     Indication: Metastases to lung

REACTIONS (1)
  - Hepatitis B [Unknown]
